FAERS Safety Report 5903536-7 (Version None)
Quarter: 2008Q3

REPORT INFORMATION
  Report Type: 
  Country: None (occurrence: None)
  Receive Date: 20080930
  Receipt Date: 20080919
  Transmission Date: 20090109
  Serious: Yes (Other)
  Sender: FDA-Public Use
  Company Number: JP-PFIZER INC-2008079325

PATIENT
  Sex: Male
  Weight: 75 kg

DRUGS (12)
  1. REVATIO [Suspect]
     Indication: INTERSTITIAL LUNG DISEASE
     Route: 048
     Dates: start: 20080507, end: 20080619
  2. TRICOR [Concomitant]
     Route: 048
  3. NITROGLYCERIN [Concomitant]
     Route: 062
  4. AIROMIR [Concomitant]
     Route: 055
  5. PULMICORT-100 [Concomitant]
     Route: 055
  6. MYSLEE [Concomitant]
     Route: 048
  7. LENDORMIN [Concomitant]
     Route: 048
  8. PREDNISOLONE [Concomitant]
     Route: 048
  9. COTRIM [Concomitant]
     Route: 048
  10. IMURAN [Concomitant]
     Route: 048
     Dates: end: 20080619
  11. ACTONEL [Concomitant]
     Route: 048
  12. EURODIN [Concomitant]
     Route: 048

REACTIONS (1)
  - PALPITATIONS [None]
